FAERS Safety Report 10199258 (Version 1)
Quarter: 2014Q2

REPORT INFORMATION
  Report Type: Spontaneous
  Country: US (occurrence: US)
  Receive Date: 20140527
  Receipt Date: 20140527
  Transmission Date: 20141212
  Serious: No
  Sender: FDA-Public Use
  Company Number: US-NOVEN-13US008457

PATIENT
  Age: 8 Year
  Sex: Male

DRUGS (2)
  1. DAYTRANA [Suspect]
     Indication: ATTENTION DEFICIT/HYPERACTIVITY DISORDER
     Dosage: 20 MG DAILY
     Route: 062
     Dates: start: 20110104
  2. DAYTRANA [Suspect]
     Dosage: 20 MG DAILY
     Route: 062
     Dates: start: 20110104

REACTIONS (5)
  - Drug effect increased [Not Recovered/Not Resolved]
  - Insomnia [Not Recovered/Not Resolved]
  - Irritability [Not Recovered/Not Resolved]
  - Mood swings [Not Recovered/Not Resolved]
  - Wrong technique in drug usage process [Not Recovered/Not Resolved]
